FAERS Safety Report 26074223 (Version 1)
Quarter: 2025Q4

REPORT INFORMATION
  Report Type: Spontaneous
  Country: CA (occurrence: CA)
  Receive Date: 20251121
  Receipt Date: 20251121
  Transmission Date: 20260118
  Serious: Yes (Other)
  Sender: STALLERGENES
  Company Number: CA-STALCOR-2025-AER-03146

PATIENT
  Age: 19 Year
  Sex: Male

DRUGS (4)
  1. ALLERGENIC EXTRACTS [Suspect]
     Active Substance: ALLERGENIC EXTRACTS
     Indication: Hypersensitivity
     Dates: start: 20200929
  2. ALLERGENIC EXTRACTS [Suspect]
     Active Substance: ALLERGENIC EXTRACTS
     Dates: start: 202505
  3. FLUOXETINE [Concomitant]
     Active Substance: FLUOXETINE HYDROCHLORIDE
     Indication: Obsessive-compulsive disorder
     Dates: start: 2021
  4. FLUOXETINE [Concomitant]
     Active Substance: FLUOXETINE HYDROCHLORIDE
     Dates: start: 202406

REACTIONS (8)
  - Respiratory rate increased [Unknown]
  - Oxygen saturation decreased [Unknown]
  - Feeling jittery [Unknown]
  - Dyspnoea [Unknown]
  - Anaphylactic reaction [Unknown]
  - Wheezing [Unknown]
  - Discomfort [Unknown]
  - Oedema [Unknown]

NARRATIVE: CASE EVENT DATE: 20250501
